FAERS Safety Report 11924475 (Version 2)
Quarter: 2016Q1

REPORT INFORMATION
  Report Type: Spontaneous
  Country: US (occurrence: US)
  Receive Date: 20160118
  Receipt Date: 20160203
  Transmission Date: 20160526
  Serious: No
  Sender: FDA-Public Use
  Company Number: US-BAYER-2016-009496

PATIENT
  Sex: Female
  Weight: 23.58 kg

DRUGS (1)
  1. MIRALAX [Suspect]
     Active Substance: POLYETHYLENE GLYCOL 3350
     Dosage: 1 DOES, QD
     Route: 048
     Dates: start: 200803

REACTIONS (2)
  - Constipation [None]
  - Product use issue [None]
